FAERS Safety Report 6839247-3 (Version None)
Quarter: 2010Q3

REPORT INFORMATION
  Report Type: 
  Country: None (occurrence: None)
  Receive Date: 20100714
  Receipt Date: 20100705
  Transmission Date: 20110219
  Serious: Yes (Other)
  Sender: FDA-Public Use
  Company Number: DE-BAYER-201029746GPV

PATIENT
  Age: 17 Year

DRUGS (1)
  1. CIPRO [Suspect]
     Indication: PRODUCT USED FOR UNKNOWN INDICATION
     Dosage: UNIT DOSE: 250 MG
     Route: 065

REACTIONS (2)
  - INVESTIGATION ABNORMAL [None]
  - VISUAL IMPAIRMENT [None]
